FAERS Safety Report 4291446-3 (Version None)
Quarter: 2004Q1

REPORT INFORMATION
  Report Type: 
  Country: None (occurrence: None)
  Receive Date: 20040211
  Receipt Date: 20040205
  Transmission Date: 20041129
  Serious: Yes (Hospitalization)
  Sender: FDA-Public Use
  Company Number: FR-BRISTOL-MYERS SQUIBB COMPANY-12497251

PATIENT
  Age: 50 Year
  Sex: Male

DRUGS (1)
  1. COAPROVEL TABS [Suspect]
     Indication: HYPERTENSION
     Route: 048
     Dates: start: 20030501, end: 20030701

REACTIONS (4)
  - DERMATITIS EXFOLIATIVE [None]
  - RASH ERYTHEMATOUS [None]
  - RASH MACULO-PAPULAR [None]
  - TOXIC SKIN ERUPTION [None]
